FAERS Safety Report 19513462 (Version 1)
Quarter: 2021Q3

REPORT INFORMATION
  Report Type: Spontaneous
  Country: ES (occurrence: ES)
  Receive Date: 20210709
  Receipt Date: 20210709
  Transmission Date: 20211014
  Serious: Yes (Other)
  Sender: FDA-Public Use
  Company Number: ES-MYLANLABS-2021M1039565

PATIENT
  Age: 58 Year
  Sex: Female

DRUGS (5)
  1. OMEPRAZOLE. [Suspect]
     Active Substance: OMEPRAZOLE
     Indication: OESOPHAGITIS
     Dosage: 40 MILLIGRAM, BID
     Route: 048
     Dates: start: 20201026, end: 20201027
  2. LAMICTAL [Concomitant]
     Active Substance: LAMOTRIGINE
     Indication: EPILEPSY
     Dosage: 300 MILLIGRAM, QD
     Route: 048
  3. CLARITHROMYCIN. [Interacting]
     Active Substance: CLARITHROMYCIN
     Indication: OESOPHAGITIS
     Dosage: 500 MILLIGRAM, QD
     Route: 048
     Dates: start: 20201026, end: 20201027
  4. AMOXICILINA                        /00249601/ [Concomitant]
     Active Substance: AMOXICILLIN
     Indication: OESOPHAGITIS
     Dosage: 1 GRAM, QD
     Route: 048
     Dates: start: 20201026
  5. CARBAMAZEPINE. [Interacting]
     Active Substance: CARBAMAZEPINE
     Indication: EPILEPSY
     Dosage: 400 MILLIGRAM, Q8H
     Route: 048
     Dates: start: 20150922

REACTIONS (4)
  - Balance disorder [Recovered/Resolved]
  - Drug interaction [Unknown]
  - Vomiting [Recovered/Resolved]
  - Nausea [Recovered/Resolved]

NARRATIVE: CASE EVENT DATE: 20201027
